FAERS Safety Report 18910941 (Version 4)
Quarter: 2023Q2

REPORT INFORMATION
  Report Type: Spontaneous
  Country: PT (occurrence: PT)
  Receive Date: 20210218
  Receipt Date: 20230621
  Transmission Date: 20230722
  Serious: Yes (Hospitalization, Other)
  Sender: FDA-Public Use
  Company Number: PT-EMA-DD-20210210-Z4X8Q8-121710

PATIENT
  Age: 53 Year
  Sex: Female

DRUGS (3)
  1. IBUPROFEN [Interacting]
     Active Substance: IBUPROFEN
     Indication: Arthralgia
     Dosage: 600 MILLIGRAM, Q8H
     Route: 048
  2. LITHIUM [Interacting]
     Active Substance: LITHIUM
     Indication: Arthralgia
     Dosage: 400MG, BID
     Route: 048
  3. LITHIUM [Interacting]
     Active Substance: LITHIUM
     Indication: Bipolar disorder

REACTIONS (7)
  - Antipsychotic drug level above therapeutic [Recovered/Resolved]
  - Toxicity to various agents [Unknown]
  - Dyskinesia [Unknown]
  - Consciousness fluctuating [Unknown]
  - Gait disturbance [Unknown]
  - Disorientation [Unknown]
  - Dysarthria [Unknown]
